FAERS Safety Report 5416401-9 (Version None)
Quarter: 2007Q3

REPORT INFORMATION
  Report Type: 
  Country: None (occurrence: None)
  Receive Date: 20070814
  Receipt Date: 20070730
  Transmission Date: 20080115
  Serious: Yes (Death)
  Sender: FDA-Public Use
  Company Number: 137

PATIENT
  Sex: Male

DRUGS (1)
  1. FAZACLO [Suspect]
     Dosage: 25 MG PO DAILY
     Route: 048
     Dates: start: 20060524, end: 20070701

REACTIONS (1)
  - DEATH [None]
